FAERS Safety Report 8042484-6 (Version None)
Quarter: 2011Q4

REPORT INFORMATION
  Report Type: 
  Country: None (occurrence: None)
  Receive Date: 20111202
  Receipt Date: 20110818
  Transmission Date: 20120403
  Serious: Yes (Life-Threatening, Hospitalization, Disabling, Other)
  Sender: FDA-Public Use
  Company Number: 2011SP039431

PATIENT
  Age: 40 Year
  Sex: Female

DRUGS (2)
  1. NUVARING [Suspect]
     Indication: CONTRACEPTION
     Dosage: ;VAG;VAG
     Route: 067
     Dates: start: 20100101, end: 20100101
  2. NUVARING [Suspect]
     Indication: CONTRACEPTION
     Dosage: ;VAG;VAG
     Route: 067
     Dates: start: 20110701, end: 20110809

REACTIONS (1)
  - PULMONARY EMBOLISM [None]
